FAERS Safety Report 17535855 (Version 1)
Quarter: 2020Q1

REPORT INFORMATION
  Report Type: Report from Study
  Country: None (occurrence: CH)
  Receive Date: 20200313
  Receipt Date: 20200313
  Transmission Date: 20200409
  Serious: Yes (Congenital Anomaly, Other)
  Sender: FDA-Public Use
  Company Number: CH-UNICHEM PHARMACEUTICALS (USA) INC-UCM202003-000295

PATIENT

DRUGS (4)
  1. DOMPERIDONE [Suspect]
     Active Substance: DOMPERIDONE
     Indication: FOETAL EXPOSURE DURING PREGNANCY
  2. QUETIAPINE. [Suspect]
     Active Substance: QUETIAPINE
     Indication: FOETAL EXPOSURE DURING PREGNANCY
  3. ALPRAZOLAM. [Suspect]
     Active Substance: ALPRAZOLAM
     Indication: FOETAL EXPOSURE DURING PREGNANCY
  4. CITALOPRAM [Suspect]
     Active Substance: CITALOPRAM HYDROBROMIDE
     Indication: FOETAL EXPOSURE DURING PREGNANCY

REACTIONS (2)
  - Polydactyly [Unknown]
  - Foetal exposure during pregnancy [Unknown]
